FAERS Safety Report 4464583-8 (Version None)
Quarter: 2004Q3

REPORT INFORMATION
  Report Type: 
  Country: None (occurrence: None)
  Receive Date: 20040929
  Receipt Date: 20040914
  Transmission Date: 20050211
  Serious: Yes (Other)
  Sender: FDA-Public Use
  Company Number: A0525652A

PATIENT
  Age: 47 Year
  Sex: Male

DRUGS (1)
  1. NICODERM CQ [Suspect]
     Indication: TOBACCO ABUSE
     Dosage: 21 MG/PER DAY/TRANSDERMAL
     Route: 062
     Dates: start: 20040912, end: 20040913

REACTIONS (4)
  - ANGER [None]
  - APPLICATION SITE BURNING [None]
  - IRRITABILITY [None]
  - PSYCHIATRIC SYMPTOM [None]
